FAERS Safety Report 16273515 (Version 2)
Quarter: 2019Q3

REPORT INFORMATION
  Report Type: Report from Study
  Country: US (occurrence: US)
  Receive Date: 20190506
  Receipt Date: 20190822
  Transmission Date: 20191004
  Serious: Yes (Other)
  Sender: FDA-Public Use
  Company Number: PHEH2019US019221

PATIENT
  Sex: Female
  Weight: 68.27 kg

DRUGS (3)
  1. TREPROSTINIL. [Suspect]
     Active Substance: TREPROSTINIL
     Indication: PULMONARY ARTERIAL HYPERTENSION
     Dosage: (144 NG/KG/MIN), CONTINUOUSLY
     Route: 042
     Dates: start: 20190410
  2. OPSUMIT [Concomitant]
     Active Substance: MACITENTAN
     Indication: PRODUCT USED FOR UNKNOWN INDICATION
     Route: 065
  3. TREPROSTINIL. [Suspect]
     Active Substance: TREPROSTINIL
     Dosage: (144 NG/KG/MIN), CONTINUOUSLY
     Route: 042
     Dates: start: 20190410

REACTIONS (4)
  - Menorrhagia [Unknown]
  - Vertigo [Unknown]
  - Fatigue [Unknown]
  - Vomiting [Unknown]
